FAERS Safety Report 18335420 (Version 1)
Quarter: 2020Q4

REPORT INFORMATION
  Report Type: Report from Study
  Country: CR (occurrence: CR)
  Receive Date: 20201001
  Receipt Date: 20201001
  Transmission Date: 20210113
  Serious: Yes (Other)
  Sender: FDA-Public Use
  Company Number: NVSC2020CR264948

PATIENT
  Sex: Female

DRUGS (1)
  1. SCAPHO [Suspect]
     Active Substance: SECUKINUMAB
     Indication: ANKYLOSING SPONDYLITIS
     Dosage: 150 MG, QMO
     Route: 058
     Dates: start: 20190125, end: 20200201

REACTIONS (4)
  - Cerebrovascular accident [Unknown]
  - Hypersomnia [Not Recovered/Not Resolved]
  - Dysarthria [Not Recovered/Not Resolved]
  - Embolism [Not Recovered/Not Resolved]
